FAERS Safety Report 8144469-8 (Version None)
Quarter: 2012Q1

REPORT INFORMATION
  Report Type: 
  Country: None (occurrence: None)
  Receive Date: 20120214
  Receipt Date: 20120202
  Transmission Date: 20120608
  Serious: Yes (Other)
  Sender: FDA-Public Use
  Company Number: US-1190296

PATIENT
  Age: 77 Year

DRUGS (2)
  1. BSS [Suspect]
     Dosage: (INTRAOCULAR)
     Route: 031
  2. VIGAMOX [Suspect]

REACTIONS (2)
  - ENDOPHTHALMITIS [None]
  - EYE INFECTION BACTERIAL [None]
